FAERS Safety Report 5292967-7 (Version None)
Quarter: 2007Q2

REPORT INFORMATION
  Report Type: 
  Country: None (occurrence: None)
  Receive Date: 20070411
  Receipt Date: 20070403
  Transmission Date: 20071010
  Serious: Yes (Disabling)
  Sender: FDA-Public Use
  Company Number: HQWYE158120FEB07

PATIENT
  Sex: Male
  Weight: 109.5 kg

DRUGS (1)
  1. RAPAMUNE [Suspect]
     Indication: PROPHYLAXIS AGAINST TRANSPLANT REJECTION
     Dosage: UNKNOWN
     Route: 048
     Dates: start: 20051006, end: 20061208

REACTIONS (2)
  - PROTEINURIA [None]
  - RENAL FAILURE [None]
